FAERS Safety Report 10533253 (Version 1)
Quarter: 2014Q4

REPORT INFORMATION
  Report Type: Spontaneous
  Country: CA (occurrence: None)
  Receive Date: 20141020
  Receipt Date: 20141020
  Transmission Date: 20150529
  Serious: Yes (Hospitalization)
  Sender: FDA-Public Use
  Company Number: CA-017344

PATIENT
  Age: 81 Year
  Sex: Male

DRUGS (13)
  1. FIRMAGON [Suspect]
     Active Substance: DEGARELIX ACETATE
     Indication: PROSTATE CANCER
     Dosage: (80 MG 1X/MONTH, 80 MG VIAL (20 MG/ML) SUBCUTANEOUS)
     Route: 058
     Dates: start: 20120601
  2. CALCIUM [Concomitant]
     Active Substance: CALCIUM
  3. PREDNISONE. [Concomitant]
     Active Substance: PREDNISONE
  4. NOVOLIN 30R /00030501/ [Concomitant]
  5. ROSUVASTATINA /01588601/ [Concomitant]
  6. VITAMIN D [Concomitant]
     Active Substance: CHOLECALCIFEROL
  7. RASILEZ [Concomitant]
     Active Substance: ALISKIREN
  8. TELMISARTAN HCTZ [Concomitant]
     Active Substance: HYDROCHLOROTHIAZIDE\TELMISARTAN
  9. MORPHINE SULFATE. [Concomitant]
     Active Substance: MORPHINE SULFATE
  10. ZYTIGA [Concomitant]
     Active Substance: ABIRATERONE ACETATE
  11. METFORMIN [Concomitant]
     Active Substance: METFORMIN HYDROCHLORIDE
  12. COLACE [Concomitant]
     Active Substance: DOCUSATE SODIUM
  13. ASA [Concomitant]
     Active Substance: ASPIRIN

REACTIONS (1)
  - Fall [None]

NARRATIVE: CASE EVENT DATE: 2014
